FAERS Safety Report 18552336 (Version 1)
Quarter: 2020Q4

REPORT INFORMATION
  Report Type: Spontaneous
  Country: DE (occurrence: DE)
  Receive Date: 20201127
  Receipt Date: 20201127
  Transmission Date: 20210114
  Serious: Yes (Other)
  Sender: FDA-Public Use
  Company Number: DE-ALK-ABELLO A/S-2020AA003910

PATIENT

DRUGS (4)
  1. ITULAZAX [Suspect]
     Active Substance: BETULA PENDULA POLLEN
     Indication: ASTHMA
     Dosage: 12 SQ-BET
     Route: 060
     Dates: start: 20200916
  2. GRAZAX [Suspect]
     Active Substance: PHLEUM PRATENSE POLLEN
     Dosage: UNK
     Dates: start: 20201101
  3. GRAZAX [Suspect]
     Active Substance: PHLEUM PRATENSE POLLEN
     Indication: ASTHMA
     Dosage: 75000 SQ-T
     Route: 060
     Dates: start: 20201013
  4. ITULAZAX [Suspect]
     Active Substance: BETULA PENDULA POLLEN
     Dosage: UNK

REACTIONS (5)
  - Swollen tongue [Recovered/Resolved]
  - Dysphagia [Recovered/Resolved]
  - Off label use [Unknown]
  - Product use in unapproved indication [Unknown]
  - Throat tightness [Recovered/Resolved]

NARRATIVE: CASE EVENT DATE: 20201026
